FAERS Safety Report 7293413-4 (Version None)
Quarter: 2011Q1

REPORT INFORMATION
  Report Type: 
  Country: None (occurrence: None)
  Receive Date: 20110215
  Receipt Date: 20110209
  Transmission Date: 20110831
  Serious: Yes (Life-Threatening, Hospitalization)
  Sender: FDA-Public Use
  Company Number: JP-ELI_LILLY_AND_COMPANY-JP201101004721

PATIENT
  Sex: Male
  Weight: 56 kg

DRUGS (6)
  1. HUMALOG [Suspect]
     Indication: TYPE 1 DIABETES MELLITUS
     Dosage: 2-2-4.5IU
     Route: 058
     Dates: start: 20100203
  2. MICARDIS [Concomitant]
     Dosage: 1 D/F, UNK
     Route: 048
     Dates: start: 20060327
  3. HUMALOG [Suspect]
     Dosage: 7-2-9.5IU
     Route: 058
     Dates: start: 20100101
  4. INSULIN GLARGINE [Concomitant]
     Indication: DIABETES MELLITUS
     Dosage: 5 IU, EACH MORNING
     Route: 058
     Dates: start: 20100310, end: 20101220
  5. INSULIN GLARGINE [Concomitant]
     Dosage: 5 IU, EACH EVENING
     Route: 058
     Dates: start: 20100310, end: 20101220
  6. ANPLAG [Concomitant]
     Dosage: 3 D/F, UNK
     Route: 048
     Dates: start: 20090826

REACTIONS (2)
  - DIABETIC KETOACIDOSIS [None]
  - WRONG DRUG ADMINISTERED [None]
